FAERS Safety Report 5586798-8 (Version None)
Quarter: 2008Q1

REPORT INFORMATION
  Report Type: 
  Country: None (occurrence: None)
  Receive Date: 20080107
  Receipt Date: 20071227
  Transmission Date: 20080703
  Serious: Yes (Other)
  Sender: FDA-Public Use
  Company Number: 2007BI012708

PATIENT
  Age: 20 Year
  Sex: Female
  Weight: 100 kg

DRUGS (2)
  1. TYSABRI [Suspect]
     Indication: MULTIPLE SCLEROSIS
     Dosage: 300 MG;QM;IV
     Route: 042
     Dates: start: 20070514, end: 20070612
  2. METOPROLOL SUCCINATE [Concomitant]

REACTIONS (1)
  - DRUG HYPERSENSITIVITY [None]
